FAERS Safety Report 4768223-X (Version None)
Quarter: 2005Q3

REPORT INFORMATION
  Report Type: 
  Country: None (occurrence: None)
  Receive Date: 20050912
  Receipt Date: 20050912
  Transmission Date: 20060218
  Serious: Yes (Hospitalization, Other)
  Sender: FDA-Public Use
  Company Number: None

PATIENT
  Sex: Female
  Weight: 57.42 kg

DRUGS (4)
  1. SANDOSTATIN [Suspect]
     Indication: NEOPLASM
     Dosage: SEE IMAGE
     Dates: start: 20050623, end: 20050819
  2. SANDOSTATIN [Suspect]
     Indication: NEOPLASM
     Dosage: SEE IMAGE
     Dates: start: 20050819
  3. RADIATION [Suspect]
     Dosage: SEE IMAGE
     Dates: start: 20050819
  4. LASIX [Concomitant]

REACTIONS (21)
  - ACTIVATED PARTIAL THROMBOPLASTIN TIME SHORTENED [None]
  - ARRHYTHMIA SUPRAVENTRICULAR [None]
  - BLOOD MAGNESIUM INCREASED [None]
  - BLOOD POTASSIUM DECREASED [None]
  - BLOOD UREA INCREASED [None]
  - CARBON DIOXIDE DECREASED [None]
  - CARDIAC TELEMETRY ABNORMAL [None]
  - CREATINE PHOSPHOKINASE DECREASED [None]
  - DIZZINESS [None]
  - EMPHYSEMA [None]
  - FAECAL INCONTINENCE [None]
  - FEELING ABNORMAL [None]
  - HEART RATE DECREASED [None]
  - NODAL ARRHYTHMIA [None]
  - OCCULT BLOOD POSITIVE [None]
  - OXYGEN SATURATION DECREASED [None]
  - PROTHROMBIN TIME PROLONGED [None]
  - SINUS ARRHYTHMIA [None]
  - SINUS BRADYCARDIA [None]
  - SYNCOPE [None]
  - URINARY INCONTINENCE [None]
